FAERS Safety Report 4707589-3 (Version None)
Quarter: 2005Q3

REPORT INFORMATION
  Report Type: 
  Country: None (occurrence: None)
  Receive Date: 20050706
  Receipt Date: 20050621
  Transmission Date: 20060218
  Serious: Yes (Other)
  Sender: FDA-Public Use
  Company Number: US-JNJFOC-20050700223

PATIENT
  Sex: Female
  Weight: 72.58 kg

DRUGS (9)
  1. MOTRIN [Suspect]
     Indication: TENDONITIS
     Dosage: 600 MG AND 800 MG PRN
     Route: 049
  2. IBUPROFEN [Suspect]
     Indication: TENDONITIS
     Dosage: 600 AND 800 MG PRN
     Route: 049
  3. XANAX [Suspect]
     Indication: DEPRESSION
     Route: 049
  4. XANAX [Suspect]
     Indication: ANXIETY
     Dosage: AS NEEDED, THEN ON A REGULAR BASIS
     Route: 049
  5. BEXTRA [Suspect]
     Indication: TENDONITIS
     Route: 049
  6. CELEBREX [Suspect]
     Indication: TENDONITIS
     Route: 049
  7. CELEXA [Concomitant]
  8. HYDROCHLOROTHIAZIDE [Concomitant]
  9. TYLENOL W/ CODEINE NO. 3 [Concomitant]

REACTIONS (23)
  - AGGRESSION [None]
  - CHEST PAIN [None]
  - CLUMSINESS [None]
  - COLD SWEAT [None]
  - CONVULSION [None]
  - DIARRHOEA [None]
  - DISORIENTATION [None]
  - DIZZINESS [None]
  - DYSGEUSIA [None]
  - DYSPHEMIA [None]
  - FALL [None]
  - FATIGUE [None]
  - FEEDING DISORDER [None]
  - HALLUCINATION, AUDITORY [None]
  - HYPOGLYCAEMIA [None]
  - LOSS OF CONSCIOUSNESS [None]
  - MIGRAINE [None]
  - NERVOUSNESS [None]
  - PARANOIA [None]
  - RETCHING [None]
  - TINNITUS [None]
  - VOMITING [None]
  - WEIGHT DECREASED [None]
